FAERS Safety Report 25597873 (Version 1)
Quarter: 2025Q3

REPORT INFORMATION
  Report Type: Spontaneous
  Country: EU (occurrence: EU)
  Receive Date: 20250723
  Receipt Date: 20250723
  Transmission Date: 20251020
  Serious: Yes (Hospitalization, Other)
  Sender: PFIZER
  Company Number: EU-AFSSAPS-CF2025000356

PATIENT
  Age: 18 Year
  Sex: Male
  Weight: 55.6 kg

DRUGS (10)
  1. FLUCONAZOLE [Suspect]
     Active Substance: FLUCONAZOLE
     Indication: Osseous cryptococcosis
     Dosage: FREQ:12 H;400 MG
     Route: 048
     Dates: start: 20250408
  2. FLUCONAZOLE [Suspect]
     Active Substance: FLUCONAZOLE
     Route: 048
  3. AMPHOTERICIN B [Suspect]
     Active Substance: AMPHOTERICIN B
     Indication: Osseous cryptococcosis
     Dosage: 3 MG/KG, 1X/DAY
     Route: 042
     Dates: start: 20250328, end: 20250408
  4. ENVARSUS XR [Suspect]
     Active Substance: TACROLIMUS
     Indication: Prophylaxis against transplant rejection
     Dosage: FREQ:12 H;1 MG, BID
     Route: 048
     Dates: start: 20241013
  5. ENVARSUS XR [Suspect]
     Active Substance: TACROLIMUS
     Route: 048
  6. DICLOFENAC [Suspect]
     Active Substance: DICLOFENAC
     Indication: Biliary tract operation
     Route: 054
     Dates: start: 20250522, end: 20250522
  7. MYFORTIC [Suspect]
     Active Substance: MYCOPHENOLATE SODIUM
     Indication: Prophylaxis against transplant rejection
     Dosage: FREQ:12 H;720 MG, BID
     Route: 048
     Dates: start: 20250522
  8. CELLCEPT [Suspect]
     Active Substance: MYCOPHENOLATE MOFETIL
     Indication: Prophylaxis against transplant rejection
     Dosage: FREQ:12 H;500 MG, BID
     Route: 048
     Dates: start: 20241013, end: 20250520
  9. TENOFOVIR DISOPROXIL FUMARATE [Suspect]
     Active Substance: TENOFOVIR DISOPROXIL FUMARATE
     Indication: Viral hepatitis carrier
     Dosage: 245 MG, QD
     Route: 048
     Dates: start: 202406
  10. AMBISOME [Suspect]
     Active Substance: AMPHOTERICIN B
     Indication: Osseous cryptococcosis
     Dosage: 3 MG/KG, 1X/DAY
     Route: 042
     Dates: start: 20250328, end: 20250408

REACTIONS (3)
  - Acute kidney injury [Recovered/Resolved]
  - Skin hyperpigmentation [Unknown]
  - Off label use [Unknown]

NARRATIVE: CASE EVENT DATE: 20250408
